FAERS Safety Report 17457147 (Version 4)
Quarter: 2020Q1

REPORT INFORMATION
  Report Type: Report from Study
  Country: None (occurrence: CH)
  Receive Date: 20200225
  Receipt Date: 20200306
  Transmission Date: 20200409
  Serious: Yes (Death, Hospitalization)
  Sender: FDA-Public Use
  Company Number: CH-ABBVIE-20K-151-3289007-00

PATIENT
  Age: 77 Year
  Sex: Female

DRUGS (3)
  1. DUODOPA [Suspect]
     Active Substance: CARBIDOPA\LEVODOPA
     Dosage: MD: 9.0 ML/H, CDR: 3.9 ML/H, CONTINUOUS NIGHT RATE 0.0 ML/H, ED:1.0 ML?16 H THERAPY
     Route: 050
     Dates: start: 20180130, end: 20190906
  2. DUODOPA [Suspect]
     Active Substance: CARBIDOPA\LEVODOPA
     Indication: PARKINSON^S DISEASE
     Dosage: 20 MG/ML 5 MG/ML
     Route: 050
     Dates: start: 20170522, end: 20180130
  3. DUODOPA [Suspect]
     Active Substance: CARBIDOPA\LEVODOPA
     Dosage: MD: 6.0 ML/H, CDR: 3.9 ML/H, CONTINUOUS NIGHT RATE 2.0 ML/H, ED:1.0 ML?16 H THERAPY
     Route: 050
     Dates: start: 20190906

REACTIONS (7)
  - General physical health deterioration [Fatal]
  - Dementia [Not Recovered/Not Resolved]
  - Altered state of consciousness [Fatal]
  - Dysphagia [Not Recovered/Not Resolved]
  - Hypernatraemia [Fatal]
  - Femoral neck fracture [Fatal]
  - Fall [Unknown]

NARRATIVE: CASE EVENT DATE: 202002
